FAERS Safety Report 5055378-5 (Version None)
Quarter: 2006Q2

REPORT INFORMATION
  Report Type: 
  Country: None (occurrence: None)
  Receive Date: 20060616
  Receipt Date: 20060223
  Transmission Date: 20061013
  Serious: No
  Sender: FDA-Public Use
  Company Number: 2006US000459

PATIENT
  Age: 97 Year
  Sex: Female

DRUGS (1)
  1. VESICARE [Suspect]
     Indication: POLLAKIURIA
     Dosage: 5 MG, UID/QD,ORAL
     Route: 048
     Dates: start: 20060115, end: 20060121

REACTIONS (1)
  - CHROMATURIA [None]
